FAERS Safety Report 21517091 (Version 2)
Quarter: 2024Q1

REPORT INFORMATION
  Report Type: Spontaneous
  Country: US (occurrence: US)
  Receive Date: 20221028
  Receipt Date: 20240202
  Transmission Date: 20240410
  Serious: No
  Sender: FDA-Public Use
  Company Number: US-SA-SAC20221026000496

PATIENT
  Age: 64 Year
  Sex: Male
  Weight: 128.37 kg

DRUGS (1)
  1. DUPIXENT [Suspect]
     Active Substance: DUPILUMAB
     Indication: Chronic sinusitis
     Dosage: 300 MG, QOW
     Route: 058
     Dates: start: 202208

REACTIONS (6)
  - Rhinorrhoea [Unknown]
  - Taste disorder [Unknown]
  - Sinusitis [Unknown]
  - Illness [Unknown]
  - Chemotherapy [Unknown]
  - Product use in unapproved indication [Unknown]

NARRATIVE: CASE EVENT DATE: 20220801
